FAERS Safety Report 13958134 (Version 1)
Quarter: 2017Q3

REPORT INFORMATION
  Report Type: Spontaneous
  Country: FR (occurrence: FR)
  Receive Date: 20170912
  Receipt Date: 20170912
  Transmission Date: 20171128
  Serious: Yes (Disabling)
  Sender: FDA-Public Use
  Company Number: PHHY2017FR130848

PATIENT
  Sex: Female

DRUGS (1)
  1. BISOPROLOL SANDOZ [Suspect]
     Active Substance: BISOPROLOL
     Indication: PRODUCT USED FOR UNKNOWN INDICATION
     Dosage: 1.5 MG, BID, MORNING AND EVENING
     Route: 065
     Dates: start: 2017

REACTIONS (5)
  - Inappropriate schedule of drug administration [Unknown]
  - Heart rate abnormal [Unknown]
  - Dysstasia [Unknown]
  - Choking sensation [Unknown]
  - Blood pressure abnormal [Unknown]

NARRATIVE: CASE EVENT DATE: 2017
